FAERS Safety Report 9673870 (Version 1)
Quarter: 2013Q4

REPORT INFORMATION
  Report Type: Spontaneous
  Country: US (occurrence: US)
  Receive Date: 20131106
  Receipt Date: 20131106
  Transmission Date: 20140711
  Serious: No
  Sender: FDA-Public Use
  Company Number: US-AMGEN-USASP2013072865

PATIENT
  Age: 77 Year
  Sex: Female

DRUGS (2)
  1. ENBREL [Suspect]
     Indication: PSORIATIC ARTHROPATHY
     Dosage: 50 MG, EVERY FOUR DAYS
     Route: 065
     Dates: start: 2002
  2. METHOTREXATE [Concomitant]
     Dosage: UNK
     Dates: start: 2002, end: 201309

REACTIONS (1)
  - Liver function test abnormal [Unknown]
